FAERS Safety Report 15067651 (Version 3)
Quarter: 2018Q3

REPORT INFORMATION
  Report Type: Spontaneous
  Country: JP (occurrence: JP)
  Receive Date: 20180626
  Receipt Date: 20180903
  Transmission Date: 20181010
  Serious: Yes (Life-Threatening, Hospitalization, Other)
  Sender: FDA-Public Use
  Company Number: JP-UCBSA-2018028154

PATIENT
  Age: 45 Year
  Sex: Female
  Weight: 65 kg

DRUGS (18)
  1. RHEUMATREX [Concomitant]
     Active Substance: METHOTREXATE SODIUM
     Dosage: 8 MG, ONCE DAILY (QD)
     Route: 048
     Dates: start: 20100930, end: 20101208
  2. RHEUMATREX [Concomitant]
     Active Substance: METHOTREXATE SODIUM
     Dosage: 6 MG, ONCE DAILY (QD)
     Route: 048
     Dates: start: 20120830, end: 20121219
  3. RHEUMATREX [Concomitant]
     Active Substance: METHOTREXATE SODIUM
     Dosage: 8 MG, ONCE DAILY (QD)
     Route: 048
     Dates: start: 20140605, end: 20141030
  4. RHEUMATREX [Concomitant]
     Active Substance: METHOTREXATE SODIUM
     Dosage: 6 MG, ONCE DAILY (QD)
     Route: 048
     Dates: start: 20101209, end: 20110518
  5. RHEUMATREX [Concomitant]
     Active Substance: METHOTREXATE SODIUM
     Dosage: 12 MG, ONCE DAILY (QD)
     Route: 048
     Dates: start: 20131121, end: 20140604
  6. PREDNISOLONE. [Concomitant]
     Active Substance: PREDNISOLONE
     Indication: RHEUMATOID ARTHRITIS
     Dosage: 2 MG, ONCE DAILY (QD)
     Route: 048
     Dates: start: 20100617, end: 20110323
  7. RHEUMATREX [Concomitant]
     Active Substance: METHOTREXATE SODIUM
     Dosage: 16 MG, ONCE DAILY (QD)
     Route: 048
     Dates: start: 20130606, end: 20131120
  8. RHEUMATREX [Concomitant]
     Active Substance: METHOTREXATE SODIUM
     Dosage: 4 MG, ONCE DAILY (QD)
     Route: 048
     Dates: start: 20110519, end: 20120829
  9. RHEUMATREX [Concomitant]
     Active Substance: METHOTREXATE SODIUM
     Indication: RHEUMATOID ARTHRITIS
     Dosage: 6 MG, ONCE DAILY (QD)
     Route: 048
     Dates: start: 20100617, end: 20100929
  10. PREDNISOLONE. [Concomitant]
     Active Substance: PREDNISOLONE
     Dosage: 1 MG, ONCE DAILY (QD)
     Route: 048
     Dates: start: 20110324, end: 20110518
  11. PREDNISOLONE. [Concomitant]
     Active Substance: PREDNISOLONE
     Dosage: 3 MG, ONCE DAILY (QD)
     Route: 048
     Dates: start: 20110519, end: 20130703
  12. RHEUMATREX [Concomitant]
     Active Substance: METHOTREXATE SODIUM
     Dosage: 12 MG, ONCE DAILY (QD)
     Route: 048
     Dates: start: 20130315, end: 20130605
  13. RHEUMATREX [Concomitant]
     Active Substance: METHOTREXATE SODIUM
     Dosage: 4 MG, ONCE DAILY (QD)
     Route: 048
     Dates: start: 20141031, end: 20150319
  14. RHEUMATREX [Concomitant]
     Active Substance: METHOTREXATE SODIUM
     Dosage: 10 MG, ONCE DAILY (QD)
     Route: 048
     Dates: start: 20130117, end: 20130314
  15. PREDNISOLONE. [Concomitant]
     Active Substance: PREDNISOLONE
     Dosage: 5 MG, ONCE DAILY (QD)
     Route: 048
     Dates: start: 20130704
  16. CIMZIA [Suspect]
     Active Substance: CERTOLIZUMAB PEGOL
     Indication: RHEUMATOID ARTHRITIS
     Dosage: 200 MG, EV 2 WEEKS(QOW)
     Route: 058
     Dates: start: 20140213
  17. RHEUMATREX [Concomitant]
     Active Substance: METHOTREXATE SODIUM
     Dosage: 8 MG, ONCE DAILY (QD)
     Route: 048
     Dates: start: 20121220, end: 20130116
  18. RHEUMATREX [Concomitant]
     Active Substance: METHOTREXATE SODIUM
     Dosage: 2 MG, ONCE DAILY (QD)
     Route: 048
     Dates: start: 20150320, end: 20150612

REACTIONS (2)
  - Subarachnoid haemorrhage [Recovered/Resolved]
  - White blood cell count decreased [Recovered/Resolved]

NARRATIVE: CASE EVENT DATE: 20180611
